FAERS Safety Report 15486855 (Version 1)
Quarter: 2018Q4

REPORT INFORMATION
  Report Type: Spontaneous
  Country: US (occurrence: US)
  Receive Date: 20181011
  Receipt Date: 20181011
  Transmission Date: 20190205
  Serious: No
  Sender: FDA-Public Use
  Company Number: US-ACLARIS THERAPEUTICS-2018US008525

PATIENT
  Age: 75 Year

DRUGS (1)
  1. ESKATA [Suspect]
     Active Substance: HYDROGEN PEROXIDE
     Indication: SEBORRHOEIC KERATOSIS
     Dosage: 1 UNK, UNK
     Route: 061
     Dates: start: 20180718, end: 20180718

REACTIONS (2)
  - Scab [Unknown]
  - Erythema [Unknown]

NARRATIVE: CASE EVENT DATE: 20180814
